FAERS Safety Report 15051479 (Version 3)
Quarter: 2018Q3

REPORT INFORMATION
  Report Type: Spontaneous
  Country: AU (occurrence: AU)
  Receive Date: 20180622
  Receipt Date: 20180802
  Transmission Date: 20181010
  Serious: Yes (Death, Other)
  Sender: FDA-Public Use
  Company Number: AU-AMGEN-AUSSP2018084189

PATIENT
  Age: 66 Year
  Sex: Male

DRUGS (5)
  1. PANITUMUMAB [Suspect]
     Active Substance: PANITUMUMAB
     Indication: ADENOCARCINOMA OF COLON
     Dosage: UNK
     Route: 065
  2. IRINOTECAN [Concomitant]
     Active Substance: IRINOTECAN
     Indication: ADENOCARCINOMA OF COLON
     Dosage: UNK
     Dates: end: 201307
  3. XELOX [Concomitant]
     Active Substance: CAPECITABINE\OXALIPLATIN
     Indication: METASTASES TO LIVER
  4. IRINOTECAN [Concomitant]
     Active Substance: IRINOTECAN
     Indication: METASTASES TO LIVER
  5. XELOX [Concomitant]
     Active Substance: CAPECITABINE\OXALIPLATIN
     Indication: ADENOCARCINOMA OF COLON
     Dosage: UNK

REACTIONS (1)
  - Death [Fatal]

NARRATIVE: CASE EVENT DATE: 201310
